FAERS Safety Report 25080661 (Version 1)
Quarter: 2025Q1

REPORT INFORMATION
  Report Type: Spontaneous
  Country: DK (occurrence: DK)
  Receive Date: 20250315
  Receipt Date: 20250315
  Transmission Date: 20250408
  Serious: Yes (Other)
  Sender: ROCHE
  Company Number: DK-ROCHE-10000225170

PATIENT
  Age: 43 Year
  Sex: Female

DRUGS (1)
  1. OCREVUS [Suspect]
     Active Substance: OCRELIZUMAB
     Indication: Relapsing-remitting multiple sclerosis
     Route: 065
     Dates: start: 202301

REACTIONS (8)
  - Rash [Unknown]
  - C-reactive protein increased [Unknown]
  - Malaise [Unknown]
  - Oropharyngeal pain [Unknown]
  - Weight decreased [Unknown]
  - Interleukin-2 receptor increased [Unknown]
  - Fatigue [Unknown]
  - Night sweats [Unknown]

NARRATIVE: CASE EVENT DATE: 20230701
